FAERS Safety Report 17239724 (Version 1)
Quarter: 2020Q1

REPORT INFORMATION
  Report Type: Report from Study
  Country: None (occurrence: US)
  Receive Date: 20200106
  Receipt Date: 20200106
  Transmission Date: 20200409
  Serious: Yes (Other)
  Sender: FDA-Public Use
  Company Number: US-ABBVIE-20K-163-3219035-00

PATIENT
  Age: 38 Year
  Sex: Female

DRUGS (1)
  1. HUMIRA [Suspect]
     Active Substance: ADALIMUMAB
     Indication: UVEITIS
     Route: 058

REACTIONS (8)
  - Dysarthria [Unknown]
  - Loss of consciousness [Recovering/Resolving]
  - Hyperhidrosis [Unknown]
  - Loss of consciousness [Unknown]
  - Menorrhagia [Recovering/Resolving]
  - Dysarthria [Unknown]
  - Hyperhidrosis [Unknown]
  - Anaemia [Recovering/Resolving]

NARRATIVE: CASE EVENT DATE: 20190723
